FAERS Safety Report 5095933-X (Version None)
Quarter: 2006Q3

REPORT INFORMATION
  Report Type: 
  Country: None (occurrence: None)
  Receive Date: 20060731
  Receipt Date: 20060422
  Transmission Date: 20061208
  Serious: No
  Sender: FDA-Public Use
  Company Number: 2006PV012530

PATIENT
  Age: 65 Year
  Sex: Female
  Weight: 117.9352 kg

DRUGS (7)
  1. BYETTA [Suspect]
     Indication: DIABETES MELLITUS NON-INSULIN-DEPENDENT
     Dosage: 5 MCG; QPM; SC
     Route: 058
     Dates: start: 20060405
  2. ZOCOR [Concomitant]
  3. VERAPAMIL ER [Concomitant]
  4. VOLIC ACID [Concomitant]
  5. LISINOPRIL [Concomitant]
  6. LASIX [Concomitant]
  7. ECOTRIN [Concomitant]

REACTIONS (3)
  - ARTERIAL OCCLUSIVE DISEASE [None]
  - BLOOD GLUCOSE INCREASED [None]
  - CARDIOMEGALY [None]
